FAERS Safety Report 13242597 (Version 2)
Quarter: 2017Q1

REPORT INFORMATION
  Report Type: Report from Study
  Country: CA (occurrence: CA)
  Receive Date: 20170217
  Receipt Date: 20170223
  Transmission Date: 20170428
  Serious: Yes (Hospitalization, Other)
  Sender: FDA-Public Use
  Company Number: CA-PFIZER INC-2017071091

PATIENT
  Age: 55 Year
  Sex: Female

DRUGS (16)
  1. TECTA [Suspect]
     Active Substance: PANTOPRAZOLE MAGNESIUM
     Dosage: 40 MG, QD
     Route: 065
     Dates: start: 201510
  2. COVERSYL [Concomitant]
     Active Substance: PERINDOPRIL
     Dosage: 8 MG, UNK
  3. PREDNISONE. [Concomitant]
     Active Substance: PREDNISONE
     Dosage: 40 MG, UNK
  4. SALOFALK /00000301/ [Concomitant]
     Active Substance: MESALAMINE
     Dosage: 500 MG, UNK
  5. ACTONEL [Concomitant]
     Active Substance: RISEDRONATE SODIUM
     Dosage: 35 MG, 1/WEEK
  6. RESTORIL [Concomitant]
     Active Substance: TEMAZEPAM
     Dosage: UNK
  7. ENTYVIO [Suspect]
     Active Substance: VEDOLIZUMAB
     Indication: COLITIS ULCERATIVE
     Dosage: 300 MG, UNK
     Route: 042
     Dates: start: 20160708
  8. EFFEXOR RS [Concomitant]
     Dosage: UNK
  9. APO TRAMADOL/ACETAMINOPHEN [Concomitant]
     Dosage: UNK
  10. NORVASC [Concomitant]
     Active Substance: AMLODIPINE BESYLATE
     Dosage: 10 MG, UNK
  11. VITAMIN B12 [Concomitant]
     Active Substance: CYANOCOBALAMIN
     Dosage: UNK
  12. FOLIC ACID. [Concomitant]
     Active Substance: FOLIC ACID
     Dosage: UNK
  13. VITAMIN D [Concomitant]
     Active Substance: CHOLECALCIFEROL
     Dosage: 1000 IU, UNK
  14. PREMARIN [Concomitant]
     Active Substance: ESTROGENS, CONJUGATED
     Dosage: UNK
  15. METHOTREXATE. [Concomitant]
     Active Substance: METHOTREXATE
     Dosage: 2.5 MG, 1/WEEK
  16. TUMS CALCIUM [Concomitant]
     Dosage: UNK

REACTIONS (2)
  - Arthralgia [Unknown]
  - Vertebral foraminal stenosis [Unknown]

NARRATIVE: CASE EVENT DATE: 201609
